FAERS Safety Report 18269212 (Version 1)
Quarter: 2020Q3

REPORT INFORMATION
  Report Type: Spontaneous
  Country: KZ (occurrence: KZ)
  Receive Date: 20200915
  Receipt Date: 20200915
  Transmission Date: 20201103
  Serious: Yes (Life-Threatening, Hospitalization, Other)
  Sender: FDA-Public Use
  Company Number: KZ-BAYER-2020-188982

PATIENT
  Age: 17 Year

DRUGS (8)
  1. CLOFAZIMINE [Concomitant]
     Active Substance: CLOFAZIMINE
     Dosage: 200 MG
     Dates: start: 20181103, end: 20190102
  2. PROTHIONAMIDE [Concomitant]
     Active Substance: PROTIONAMIDE
     Dosage: 750 MG
     Dates: start: 20181006
  3. ISONIAZID. [Concomitant]
     Active Substance: ISONIAZID
     Dosage: 600 MG
  4. PYRAZINAMIDE. [Concomitant]
     Active Substance: PYRAZINAMIDE
     Dosage: 1600 MG/DAY
     Dates: start: 20181103, end: 20190102
  5. CYCLOSERIN [Concomitant]
     Active Substance: CYCLOSERINE
     Dosage: 750 MG
     Dates: start: 20181006
  6. CAPREOMYCIN [Concomitant]
     Active Substance: CAPREOMYCIN
     Dosage: 1000 MG
     Route: 042
     Dates: start: 20181006, end: 20190102
  7. PYRAZINAMIDE. [Concomitant]
     Active Substance: PYRAZINAMIDE
     Dosage: 2G/DAY
     Dates: start: 20181006, end: 20181102
  8. MOXIFLOXACIN ORAL [Suspect]
     Active Substance: MOXIFLOXACIN
     Indication: TUBERCULOSIS
     Dosage: 800 MG/DAY
     Dates: start: 20181103, end: 20190102

REACTIONS (7)
  - Myocarditis [None]
  - Off label use [None]
  - Cardio-respiratory arrest [Recovered/Resolved]
  - Product use issue [None]
  - Loss of consciousness [Recovered/Resolved]
  - Post cardiac arrest syndrome [None]
  - Seizure [Recovered/Resolved]

NARRATIVE: CASE EVENT DATE: 2018
